FAERS Safety Report 8825819 (Version 2)
Quarter: 2012Q4

REPORT INFORMATION
  Report Type: 
  Country: US (occurrence: US)
  Receive Date: 20121004
  Receipt Date: 20121023
  Transmission Date: 20130627
  Serious: Yes (Other)
  Sender: FDA-Public Use
  Company Number: US-UCBSA-068062

PATIENT
  Age: 17 Year
  Sex: Male

DRUGS (3)
  1. CIMZIA [Suspect]
     Indication: CROHN^S DISEASE
     Dates: start: 201203
  2. 6MP [Concomitant]
     Dosage: UNKNOWN
  3. MTX [Concomitant]
     Dosage: 1 CC QWEEK

REACTIONS (3)
  - Infected fistula [Recovered/Resolved]
  - Abscess [Recovered/Resolved]
  - Weight increased [Unknown]
